FAERS Safety Report 5842246-1 (Version None)
Quarter: 2008Q3

REPORT INFORMATION
  Report Type: 
  Country: None (occurrence: None)
  Receive Date: 20080731
  Receipt Date: 20080430
  Transmission Date: 20090109
  Serious: No
  Sender: FDA-Public Use
  Company Number: US200801003196

PATIENT
  Age: 64 Year
  Sex: Female
  Weight: 73.5 kg

DRUGS (15)
  1. BYETTA [Suspect]
     Indication: TYPE 2 DIABETES MELLITUS
     Dosage: 5 UG, 5 UG, 2/D, SUBCUTANEOUS, 5 UG
     Dates: start: 20070816, end: 20070831
  2. BYETTA [Suspect]
     Indication: TYPE 2 DIABETES MELLITUS
     Dosage: 5 UG, 5 UG, 2/D, SUBCUTANEOUS, 5 UG
     Dates: start: 20071008, end: 20071008
  3. EXENATIDE PEN, DISPOSABLE DEVICE (EXENATIDE PEN)) PEN,DISPOSABLE [Concomitant]
  4. METFORMIN HCL [Concomitant]
  5. ANTI-DIABETICS [Concomitant]
  6. ATACAND [Concomitant]
  7. BENICAR HCT (HYDROCHLOROTHIAZIDE, OLMESARTAN MEDOXOMIL) [Concomitant]
  8. FEMARA [Concomitant]
  9. AMARYL [Concomitant]
  10. MIRAPEX [Concomitant]
  11. NEXIUM [Concomitant]
  12. OMACOR [Concomitant]
  13. SERTRALINE HYDROCHLORIDE [Concomitant]
  14. SIMVASTATIN [Concomitant]
  15. WARFARIN SODIUM [Concomitant]

REACTIONS (12)
  - DIZZINESS [None]
  - FEELING JITTERY [None]
  - GENERALISED ERYTHEMA [None]
  - HYPERSENSITIVITY [None]
  - INJECTION SITE PAIN [None]
  - NAUSEA [None]
  - OEDEMA PERIPHERAL [None]
  - PALPITATIONS [None]
  - PHARYNGEAL OEDEMA [None]
  - PRURITUS GENERALISED [None]
  - RASH PRURITIC [None]
  - VISUAL IMPAIRMENT [None]
